FAERS Safety Report 6493760-X (Version None)
Quarter: 2009Q4

REPORT INFORMATION
  Report Type: 
  Country: None (occurrence: None)
  Receive Date: 20091214
  Receipt Date: 20081103
  Transmission Date: 20100525
  Serious: No
  Sender: FDA-Public Use
  Company Number: US-BRISTOL-MYERS SQUIBB COMPANY-14358816

PATIENT
  Age: 52 Year
  Sex: Male

DRUGS (5)
  1. ABILIFY [Suspect]
     Indication: SCHIZOAFFECTIVE DISORDER
     Dosage: 1/2 OF 5MG TABLETS BID
     Route: 048
     Dates: start: 20080923, end: 20080901
  2. CELEXA [Concomitant]
  3. WELLBUTRIN [Concomitant]
  4. ARTANE [Concomitant]
  5. INVEGA [Concomitant]

REACTIONS (1)
  - FACIAL PALSY [None]
